FAERS Safety Report 4429656-4 (Version None)
Quarter: 2004Q3

REPORT INFORMATION
  Report Type: 
  Country: None (occurrence: None)
  Receive Date: 20040819
  Receipt Date: 20040810
  Transmission Date: 20050211
  Serious: Yes (Hospitalization)
  Sender: FDA-Public Use
  Company Number: JP-MERCK-0408USA00822

PATIENT
  Age: 74 Year
  Sex: Female

DRUGS (18)
  1. SYMMETREL [Concomitant]
     Route: 048
  2. AMOXAPINE [Concomitant]
     Route: 048
  3. MADOPAR [Concomitant]
     Route: 048
  4. CABERGOLINE [Concomitant]
     Route: 048
  5. DISTIGMINE BROMIDE [Concomitant]
     Indication: URINARY INCONTINENCE
     Route: 048
     Dates: start: 20040622, end: 20040624
  6. DISTIGMINE BROMIDE [Concomitant]
     Indication: URINARY TRACT INFECTION
     Route: 048
     Dates: start: 20040622, end: 20040624
  7. ROHYPNOL [Concomitant]
     Route: 048
  8. DALMATE [Concomitant]
     Route: 048
  9. GANATON [Concomitant]
     Indication: URINARY INCONTINENCE
     Route: 048
     Dates: start: 20040622, end: 20040624
  10. GANATON [Concomitant]
     Indication: URINARY TRACT INFECTION
     Route: 048
     Dates: start: 20040622, end: 20040624
  11. PRORENAL [Concomitant]
     Route: 048
  12. MOBIC [Concomitant]
     Route: 048
  13. NOROXIN [Suspect]
     Indication: URINARY INCONTINENCE
     Route: 048
     Dates: start: 20040622, end: 20040624
  14. NOROXIN [Suspect]
     Indication: URINARY TRACT INFECTION
     Route: 048
     Dates: start: 20040622, end: 20040624
  15. MICARDIS [Concomitant]
     Route: 048
  16. EBRANTIL [Concomitant]
     Indication: URINARY INCONTINENCE
     Route: 048
     Dates: start: 20040622, end: 20040624
  17. EBRANTIL [Concomitant]
     Indication: URINARY TRACT INFECTION
     Route: 048
     Dates: start: 20040622, end: 20040624
  18. JUVELA [Concomitant]
     Route: 048

REACTIONS (3)
  - ADVERSE EVENT [None]
  - HYPOXIA [None]
  - RHABDOMYOLYSIS [None]
